FAERS Safety Report 5484984-9 (Version None)
Quarter: 2007Q4

REPORT INFORMATION
  Report Type: 
  Country: None (occurrence: None)
  Receive Date: 20071001
  Receipt Date: 20070305
  Transmission Date: 20080405
  Serious: Yes (Other)
  Sender: FDA-Public Use
  Company Number: 070321-0000318

PATIENT

DRUGS (1)
  1. PANHEMATIN [Suspect]
     Indication: PORPHYRIA
     Dosage: ;IV
     Route: 042

REACTIONS (4)
  - HAEMOCHROMATOSIS [None]
  - HEPATIC CIRRHOSIS [None]
  - IRON OVERLOAD [None]
  - LIVER DISORDER [None]
